FAERS Safety Report 8613850-2 (Version None)
Quarter: 2012Q3

REPORT INFORMATION
  Report Type: 
  Country: None (occurrence: None)
  Receive Date: 20120823
  Receipt Date: 20120809
  Transmission Date: 20120928
  Serious: Yes (Disabling, Other)
  Sender: FDA-Public Use
  Company Number: US-009507513-1202USA02280

PATIENT

DRUGS (7)
  1. FOSAMAX [Suspect]
     Indication: OSTEOPENIA
     Dosage: 70 MG, UNK
     Route: 048
     Dates: start: 20001101, end: 20021119
  2. FOSAMAX [Suspect]
     Dosage: 35 MG, QW
     Route: 048
     Dates: start: 20001120, end: 20041101
  3. CALCIUM (UNSPECIFIED) [Concomitant]
     Dates: start: 19900101
  4. MK-9278 [Concomitant]
     Dates: start: 19900101
  5. FOSAMAX [Suspect]
     Dosage: 70 MG, QW
     Route: 048
     Dates: start: 20041101, end: 20061001
  6. ACTONEL [Suspect]
     Indication: OSTEOPENIA
     Dosage: 35 MG, UNK
     Route: 048
     Dates: start: 20080101, end: 20100301
  7. ACTONEL [Suspect]
     Dosage: 150 MG, UNK
     Route: 048
     Dates: start: 20080801, end: 20080901

REACTIONS (58)
  - METAPLASIA [None]
  - LOW TURNOVER OSTEOPATHY [None]
  - GINGIVAL DISORDER [None]
  - FRACTURE NONUNION [None]
  - RADICULOPATHY [None]
  - SCIATICA [None]
  - AUTOIMMUNE THYROIDITIS [None]
  - OSTEOARTHRITIS [None]
  - HAEMATURIA [None]
  - FOOT DEFORMITY [None]
  - POSTMENOPAUSAL HAEMORRHAGE [None]
  - PRURITUS [None]
  - CERVICITIS [None]
  - FOOT FRACTURE [None]
  - VAGINAL DISORDER [None]
  - GOITRE [None]
  - HERPES ZOSTER [None]
  - NODULE [None]
  - FALL [None]
  - ADENOMA BENIGN [None]
  - VULVOVAGINAL DRYNESS [None]
  - DYSPHAGIA [None]
  - ENDOMETRIAL HYPERPLASIA [None]
  - ADENOMYOSIS [None]
  - LEIOMYOMA [None]
  - SKIN DISORDER [None]
  - CYSTITIS [None]
  - GAIT DISTURBANCE [None]
  - DYSPAREUNIA [None]
  - GLUCOSE TOLERANCE IMPAIRED [None]
  - ANAEMIA [None]
  - DRUG HYPERSENSITIVITY [None]
  - AORTIC VALVE INCOMPETENCE [None]
  - OEDEMA [None]
  - IMPAIRED HEALING [None]
  - THYROID NEOPLASM [None]
  - INTERVERTEBRAL DISC PROTRUSION [None]
  - COLONIC POLYP [None]
  - MYALGIA [None]
  - HYPERSENSITIVITY [None]
  - FEMUR FRACTURE [None]
  - TOOTH DISORDER [None]
  - ADVERSE EVENT [None]
  - MORTON'S NEUROMA [None]
  - COITAL BLEEDING [None]
  - CYST RUPTURE [None]
  - HYPERCHOLESTEROLAEMIA [None]
  - FOOD ALLERGY [None]
  - FRACTURE DELAYED UNION [None]
  - FATIGUE [None]
  - MULTIPLE FRACTURES [None]
  - TENDONITIS [None]
  - DERMATITIS [None]
  - BURSITIS [None]
  - ADVERSE DRUG REACTION [None]
  - ALLERGY TO ANIMAL [None]
  - HYPOTHYROIDISM [None]
  - HYPOPARATHYROIDISM [None]
